FAERS Safety Report 11908291 (Version 1)
Quarter: 2016Q1

REPORT INFORMATION
  Report Type: Spontaneous
  Country: US (occurrence: US)
  Receive Date: 20160111
  Receipt Date: 20160111
  Transmission Date: 20160526
  Serious: No
  Sender: FDA-Public Use
  Company Number: US-PFIZER INC-2015450853

PATIENT
  Sex: Female

DRUGS (2)
  1. DIPHENOXYLATE [Suspect]
     Active Substance: DIPHENOXYLATE
     Dosage: UNK
  2. ATROPINE SULFATE. [Suspect]
     Active Substance: ATROPINE SULFATE
     Dosage: UNK

REACTIONS (1)
  - Drug ineffective [Unknown]
